FAERS Safety Report 9511320 (Version 4)
Quarter: 2013Q3

REPORT INFORMATION
  Report Type: Report from Study
  Country: ZA (occurrence: ZA)
  Receive Date: 20130910
  Receipt Date: 20130930
  Transmission Date: 20140515
  Serious: Yes (Hospitalization)
  Sender: FDA-Public Use
  Company Number: ZA-JNJFOC-20130806906

PATIENT
  Age: 24 Year
  Sex: Female
  Weight: 51 kg

DRUGS (12)
  1. TMC207 [Suspect]
     Indication: TUBERCULOSIS
     Route: 048
     Dates: start: 20130918
  2. TMC207 [Suspect]
     Indication: TUBERCULOSIS
     Route: 048
     Dates: start: 20130823, end: 20130828
  3. TMC207 [Suspect]
     Indication: TUBERCULOSIS
     Route: 048
     Dates: start: 20130731, end: 20130812
  4. TERIZIDONE [Suspect]
     Indication: TUBERCULOSIS
     Route: 048
     Dates: start: 20130731, end: 20130812
  5. PYRIDOXINE [Concomitant]
     Indication: PROPHYLAXIS
     Route: 048
     Dates: start: 20130731
  6. TRIPHASIL [Concomitant]
     Indication: CONTRACEPTION
     Route: 048
     Dates: start: 20130731
  7. PYRAZINAMIDE [Concomitant]
     Indication: TUBERCULOSIS
     Route: 048
     Dates: start: 20130731
  8. ETHAMBUTOL [Concomitant]
     Indication: TUBERCULOSIS
     Route: 048
     Dates: start: 20130731
  9. LEVOFLOXACIN [Concomitant]
     Indication: TUBERCULOSIS
     Route: 048
     Dates: start: 20130731
  10. PAS [Concomitant]
     Indication: TUBERCULOSIS
     Route: 048
     Dates: start: 20130731
  11. LINEZOLID [Concomitant]
     Indication: TUBERCULOSIS
     Route: 048
     Dates: start: 20130731
  12. CLOFAZIMINE [Concomitant]
     Indication: TUBERCULOSIS
     Route: 048
     Dates: start: 20130731

REACTIONS (2)
  - Psychotic disorder [Not Recovered/Not Resolved]
  - Electrocardiogram QT prolonged [Recovered/Resolved]
